FAERS Safety Report 9641397 (Version 1)
Quarter: 2013Q4

REPORT INFORMATION
  Report Type: Spontaneous
  Country: US (occurrence: US)
  Receive Date: 20131023
  Receipt Date: 20131023
  Transmission Date: 20140711
  Serious: No
  Sender: FDA-Public Use
  Company Number: US-ABBVIE-12P-163-1025810-00

PATIENT
  Age: 20 Year
  Sex: Female
  Weight: 54.48 kg

DRUGS (3)
  1. LUPRON DEPOT [Suspect]
     Indication: PELVIC PAIN
     Dates: start: 20121217
  2. AYGESTIN [Suspect]
     Indication: HORMONE THERAPY
     Dates: start: 20121218
  3. PROVERA [Concomitant]
     Dates: start: 20121219

REACTIONS (2)
  - Pruritus [Recovered/Resolved]
  - Drug intolerance [Unknown]
